FAERS Safety Report 16852149 (Version 1)
Quarter: 2019Q3

REPORT INFORMATION
  Report Type: Spontaneous
  Country: US (occurrence: US)
  Receive Date: 20190925
  Receipt Date: 20190925
  Transmission Date: 20191005
  Serious: Yes (Other)
  Sender: FDA-Public Use
  Company Number: US-AMGEN-USASP2019156030

PATIENT

DRUGS (2)
  1. EPOGEN [Suspect]
     Active Substance: ERYTHROPOIETIN
     Indication: NEPHROGENIC ANAEMIA
     Dosage: UNK (1 TO 3 TIMES PER WEEK)
     Route: 042
  2. EPOGEN [Suspect]
     Active Substance: ERYTHROPOIETIN
     Dosage: UNK (1 TO 3 TIMES PER WEEK)
     Route: 058

REACTIONS (28)
  - Cardiac arrest [Unknown]
  - Drug intolerance [Unknown]
  - Hypoglycaemia [Unknown]
  - Pyelonephritis acute [Unknown]
  - Fall [Unknown]
  - Headache [Unknown]
  - Respiratory arrest [Unknown]
  - Impaired gastric emptying [Unknown]
  - Osteomyelitis [Unknown]
  - Coronary artery disease [Unknown]
  - Injection site pain [Unknown]
  - Pulmonary oedema [Unknown]
  - Pneumonia [Unknown]
  - Atrial fibrillation [Unknown]
  - Injection site swelling [Unknown]
  - Chronic obstructive pulmonary disease [Unknown]
  - Haemoglobin abnormal [Unknown]
  - Decubitus ulcer [Unknown]
  - Dizziness [Unknown]
  - Nausea [Unknown]
  - Mental impairment [Unknown]
  - Non-cardiac chest pain [Unknown]
  - Gastrointestinal angiodysplasia [Unknown]
  - Pyrexia [Unknown]
  - Sepsis [Unknown]
  - Hyperkalaemia [Unknown]
  - Cellulitis [Unknown]
  - Anti-erythropoietin antibody positive [Unknown]
